FAERS Safety Report 9823304 (Version 4)
Quarter: 2014Q1

REPORT INFORMATION
  Report Type: Spontaneous
  Country: US (occurrence: US)
  Receive Date: 20140116
  Receipt Date: 20140318
  Transmission Date: 20141002
  Serious: Yes (Disabling)
  Sender: FDA-Public Use
  Company Number: US-GILEAD-2014-0092191

PATIENT
  Sex: Female

DRUGS (2)
  1. LETAIRIS [Suspect]
     Indication: PULMONARY HYPERTENSION
     Dosage: 10 MG, QD
     Route: 065
     Dates: start: 20131126, end: 20140120
  2. HYDROCHLOROTHIAZIDE [Concomitant]
     Indication: FLUID RETENTION

REACTIONS (7)
  - Abasia [Unknown]
  - Gait disturbance [Unknown]
  - Oedema peripheral [Unknown]
  - Pain in extremity [Unknown]
  - Eye disorder [Unknown]
  - Fluid retention [Unknown]
  - Weight increased [Unknown]
